FAERS Safety Report 12544282 (Version 2)
Quarter: 2016Q3

REPORT INFORMATION
  Report Type: Spontaneous
  Country: DE (occurrence: DE)
  Receive Date: 20160711
  Receipt Date: 20160719
  Transmission Date: 20161109
  Serious: Yes (Hospitalization, Other)
  Sender: FDA-Public Use
  Company Number: DE-ACTAVIS-2016-14756

PATIENT
  Age: 59 Year
  Sex: Male

DRUGS (2)
  1. ETOPOSIDE (UNKNOWN) [Suspect]
     Active Substance: ETOPOSIDE
     Indication: NASAL SINUS CANCER
     Dosage: 270 MG/M2, CYCLICAL;3 CYCLES; KOF; 100%; Q29; Q57
     Route: 065
  2. CISPLATIN (UNKNOWN) [Suspect]
     Active Substance: CISPLATIN
     Indication: NASAL SINUS CANCER
     Dosage: 90 MG/M2, CYCLICAL; 3 CYCLES; KOF; 100%; Q29; Q57
     Route: 065

REACTIONS (6)
  - Agitation [Unknown]
  - Thrombocytopenia [Unknown]
  - Cytomegalovirus infection [Recovered/Resolved]
  - Incontinence [Recovering/Resolving]
  - Disorientation [Unknown]
  - Ataxia [Recovering/Resolving]

NARRATIVE: CASE EVENT DATE: 20140113
